FAERS Safety Report 18254277 (Version 1)
Quarter: 2020Q3

REPORT INFORMATION
  Report Type: Spontaneous
  Country: CA (occurrence: CA)
  Receive Date: 20200911
  Receipt Date: 20200911
  Transmission Date: 20201103
  Serious: Yes (Life-Threatening, Hospitalization)
  Sender: FDA-Public Use
  Company Number: CA-ROCHE-2674762

PATIENT
  Age: 49 Year
  Sex: Male
  Weight: 160 kg

DRUGS (15)
  1. TERBINAFINE. [Concomitant]
     Active Substance: TERBINAFINE
     Dosage: AS NEEDED
  2. MAGNESIUM [Concomitant]
     Active Substance: MAGNESIUM
  3. METOPROLOL. [Concomitant]
     Active Substance: METOPROLOL
  4. TURMERIC [Concomitant]
     Active Substance: HERBALS\TURMERIC
  5. OCREVUS [Suspect]
     Active Substance: OCRELIZUMAB
     Indication: MULTIPLE SCLEROSIS
     Route: 042
     Dates: start: 20200312
  6. BACLOFEN. [Concomitant]
     Active Substance: BACLOFEN
  7. VIT D [Concomitant]
     Active Substance: VITAMIN D NOS
  8. BRILINTA [Concomitant]
     Active Substance: TICAGRELOR
     Route: 048
  9. CYMBALTA [Concomitant]
     Active Substance: DULOXETINE HYDROCHLORIDE
  10. LOTRIDERM [Concomitant]
     Active Substance: BETAMETHASONE DIPROPIONATE\CLOTRIMAZOLE
  11. ASPIRIN. [Concomitant]
     Active Substance: ASPIRIN
  12. SYNTHROID [Concomitant]
     Active Substance: LEVOTHYROXINE SODIUM
  13. TELMISARTAN. [Concomitant]
     Active Substance: TELMISARTAN
  14. PANTOPRAZOLE [Concomitant]
     Active Substance: PANTOPRAZOLE
     Dosage: DAILY
  15. METFORMIN [Concomitant]
     Active Substance: METFORMIN HYDROCHLORIDE

REACTIONS (3)
  - Lethargy [Unknown]
  - Coronary artery occlusion [Unknown]
  - Myocardial infarction [Recovering/Resolving]
